FAERS Safety Report 23089039 (Version 2)
Quarter: 2023Q4

REPORT INFORMATION
  Report Type: Spontaneous
  Country: AT (occurrence: AT)
  Receive Date: 20231020
  Receipt Date: 20231121
  Transmission Date: 20240110
  Serious: Yes (Other)
  Sender: FDA-Public Use
  Company Number: AT-BAXTER-2023BAX032683

PATIENT
  Age: 83 Year
  Sex: Female
  Weight: 52 kg

DRUGS (20)
  1. RITUXIMAB [Suspect]
     Active Substance: RITUXIMAB
     Indication: Diffuse large B-cell lymphoma stage III
     Dosage: AS A PART OF R-MINI-CHOP REGIMEN, 6 X CYCLE
     Dates: start: 202010, end: 202101
  2. RITUXIMAB [Suspect]
     Active Substance: RITUXIMAB
     Indication: Macular degeneration
  3. RITUXIMAB [Suspect]
     Active Substance: RITUXIMAB
     Indication: Hypercholesterolaemia
  4. RITUXIMAB [Suspect]
     Active Substance: RITUXIMAB
     Indication: Osteoporosis
  5. DOXORUBICIN HYDROCHLORIDE [Suspect]
     Active Substance: DOXORUBICIN HYDROCHLORIDE
     Indication: Diffuse large B-cell lymphoma stage III
     Dosage: AS A PART OF R-MINI-CHOP REGIMEN, 6 X CYCLE
     Dates: start: 202010, end: 202101
  6. DOXORUBICIN HYDROCHLORIDE [Suspect]
     Active Substance: DOXORUBICIN HYDROCHLORIDE
     Indication: Macular degeneration
  7. DOXORUBICIN HYDROCHLORIDE [Suspect]
     Active Substance: DOXORUBICIN HYDROCHLORIDE
     Indication: Osteoporosis
  8. DOXORUBICIN HYDROCHLORIDE [Suspect]
     Active Substance: DOXORUBICIN HYDROCHLORIDE
     Indication: Hypercholesterolaemia
  9. VINCRISTINE SULFATE [Suspect]
     Active Substance: VINCRISTINE SULFATE
     Indication: Diffuse large B-cell lymphoma stage III
     Dosage: AS A PART OF R-MINI-CHOP REGIMEN, 6 X CYCLE
     Dates: start: 202010, end: 202101
  10. VINCRISTINE SULFATE [Suspect]
     Active Substance: VINCRISTINE SULFATE
     Indication: Hypercholesterolaemia
  11. VINCRISTINE SULFATE [Suspect]
     Active Substance: VINCRISTINE SULFATE
     Indication: Osteoporosis
  12. VINCRISTINE SULFATE [Suspect]
     Active Substance: VINCRISTINE SULFATE
     Indication: Macular degeneration
  13. PREDNISONE [Suspect]
     Active Substance: PREDNISONE
     Indication: Diffuse large B-cell lymphoma stage III
     Dosage: AS A PART OF R-MINI-CHOP REGIMEN, 6 X CYCLE
     Dates: start: 202010, end: 202101
  14. PREDNISONE [Suspect]
     Active Substance: PREDNISONE
     Indication: Macular degeneration
  15. PREDNISONE [Suspect]
     Active Substance: PREDNISONE
     Indication: Hypercholesterolaemia
  16. PREDNISONE [Suspect]
     Active Substance: PREDNISONE
     Indication: Osteoporosis
  17. CYCLOPHOSPHAMIDE [Suspect]
     Active Substance: CYCLOPHOSPHAMIDE
     Indication: Diffuse large B-cell lymphoma stage III
     Dosage: AS A PART OF R-MINI-CHOP REGIMEN, 6 X CYCLE
     Dates: start: 202010, end: 202101
  18. CYCLOPHOSPHAMIDE [Suspect]
     Active Substance: CYCLOPHOSPHAMIDE
     Indication: Hypercholesterolaemia
  19. CYCLOPHOSPHAMIDE [Suspect]
     Active Substance: CYCLOPHOSPHAMIDE
     Indication: Macular degeneration
  20. CYCLOPHOSPHAMIDE [Suspect]
     Active Substance: CYCLOPHOSPHAMIDE
     Indication: Osteoporosis

REACTIONS (11)
  - Pneumonia [Unknown]
  - Renal amyloidosis [Unknown]
  - Renal tubular atrophy [Unknown]
  - Cytomegalovirus colitis [Unknown]
  - Eosinophilic colitis [Unknown]
  - Primary amyloidosis [Unknown]
  - Neoplasm progression [Unknown]
  - Ulcer [Unknown]
  - Disease recurrence [Unknown]
  - Herpes zoster [Unknown]
  - Intestinal fibrosis [Unknown]
